FAERS Safety Report 4473042-8 (Version None)
Quarter: 2004Q4

REPORT INFORMATION
  Report Type: 
  Country: None (occurrence: None)
  Receive Date: 20041013
  Receipt Date: 20040927
  Transmission Date: 20050328
  Serious: Yes (Other)
  Sender: FDA-Public Use
  Company Number: US-GLAXOSMITHKLINE-A0527927A

PATIENT
  Age: 23 Year
  Sex: Female

DRUGS (3)
  1. LAMIVUDINE [Suspect]
     Indication: HEPATITIS B
     Dosage: 150MG TWICE PER DAY
     Route: 048
  2. ADEFOVIR [Suspect]
     Indication: HEPATITIS B
     Route: 048
     Dates: start: 20040701
  3. PRENATAL VITAMINS [Concomitant]

REACTIONS (2)
  - DRUG EXPOSURE DURING PREGNANCY [None]
  - STILLBIRTH [None]
